FAERS Safety Report 20292164 (Version 1)
Quarter: 2022Q1

REPORT INFORMATION
  Report Type: Spontaneous
  Country: US (occurrence: US)
  Receive Date: 20220104
  Receipt Date: 20220104
  Transmission Date: 20220423
  Serious: No
  Sender: FDA-Public Use
  Company Number: US-LUNDBECK-DKLU3042153

PATIENT
  Age: 21 Year
  Sex: Female

DRUGS (1)
  1. SABRIL [Suspect]
     Active Substance: VIGABATRIN
     Indication: Dacryostenosis acquired
     Route: 048
     Dates: start: 201607

REACTIONS (1)
  - Product use in unapproved indication [Unknown]
